FAERS Safety Report 9676393 (Version 2)
Quarter: 2014Q1

REPORT INFORMATION
  Report Type: Spontaneous
  Country: IT (occurrence: FR)
  Receive Date: 20131107
  Receipt Date: 20140131
  Transmission Date: 20141002
  Serious: Yes (Hospitalization)
  Sender: FDA-Public Use
  Company Number: FR-FRI-1000050769

PATIENT
  Sex: Male

DRUGS (1)
  1. NEBIVOLOL [Suspect]
     Dosage: 15 MG
     Route: 048
     Dates: start: 2013, end: 201310

REACTIONS (5)
  - Cardiac failure [Unknown]
  - Glaucoma [Unknown]
  - Tinnitus [Unknown]
  - Erectile dysfunction [Unknown]
  - Overdose [Unknown]
